FAERS Safety Report 16263275 (Version 4)
Quarter: 2021Q1

REPORT INFORMATION
  Report Type: Report from Study
  Country: US (occurrence: US)
  Receive Date: 20190502
  Receipt Date: 20210314
  Transmission Date: 20210419
  Serious: Yes (Other)
  Sender: FDA-Public Use
  Company Number: US-SA-2016SA214297

PATIENT
  Age: 46 Year
  Sex: Female

DRUGS (2)
  1. ALEMTUZUMAB [Suspect]
     Active Substance: ALEMTUZUMAB
     Indication: MULTIPLE SCLEROSIS
     Dosage: 12 MG,QD
     Route: 041
     Dates: start: 20161114, end: 20161118
  2. SOLU?MEDROL [Concomitant]
     Active Substance: METHYLPREDNISOLONE SODIUM SUCCINATE
     Dosage: 1000 MG,UNK
     Route: 042
     Dates: start: 20161114

REACTIONS (30)
  - Thyroid disorder [Not Recovered/Not Resolved]
  - Weight increased [Not Recovered/Not Resolved]
  - Menstruation irregular [Not Recovered/Not Resolved]
  - Fatigue [Unknown]
  - Infusion related reaction [Unknown]
  - CD4 lymphocytes [Not Recovered/Not Resolved]
  - Product use issue [Unknown]
  - Mood swings [Not Recovered/Not Resolved]
  - Rash erythematous [Recovered/Resolved]
  - Unevaluable event [Not Recovered/Not Resolved]
  - Contusion [Recovered/Resolved]
  - Memory impairment [Not Recovered/Not Resolved]
  - Impatience [Not Recovered/Not Resolved]
  - Abdominal discomfort [Recovered/Resolved]
  - Dyspnoea [Recovered/Resolved]
  - Condition aggravated [Recovered/Resolved]
  - Gait disturbance [Not Recovered/Not Resolved]
  - Tremor [Unknown]
  - Chromaturia [Not Recovered/Not Resolved]
  - Nasopharyngitis [Recovered/Resolved]
  - Blood count abnormal [Not Recovered/Not Resolved]
  - Decreased immune responsiveness [Not Recovered/Not Resolved]
  - Laboratory test abnormal [Not Recovered/Not Resolved]
  - Thyroid function test abnormal [Not Recovered/Not Resolved]
  - Fatigue [Recovered/Resolved]
  - Dysuria [Not Recovered/Not Resolved]
  - Disease progression [Not Recovered/Not Resolved]
  - Erythema [Not Recovered/Not Resolved]
  - Headache [Recovering/Resolving]
  - Panic attack [Recovered/Resolved]

NARRATIVE: CASE EVENT DATE: 2016
